FAERS Safety Report 19517095 (Version 1)
Quarter: 2021Q3

REPORT INFORMATION
  Report Type: Spontaneous
  Country: US (occurrence: US)
  Receive Date: 20210712
  Receipt Date: 20210712
  Transmission Date: 20211014
  Serious: Yes (Hospitalization, Other)
  Sender: FDA-Public Use
  Company Number: US-BION-009914

PATIENT
  Age: 14 Year
  Sex: Female

DRUGS (4)
  1. TOPIRAMATE. [Concomitant]
     Active Substance: TOPIRAMATE
     Dosage: AT BEDTIME
  2. CLONIDINE. [Concomitant]
     Active Substance: CLONIDINE
     Dosage: AT BEDTIME
  3. BUPROPION/BUPROPION HYDROCHLORIDE [Suspect]
     Active Substance: BUPROPION HYDROCHLORIDE
     Indication: DEPRESSIVE SYMPTOM
     Dosage: EXTENDED RELEASE
  4. AMANTADINE HYDROCHLORIDE. [Suspect]
     Active Substance: AMANTADINE HYDROCHLORIDE
     Indication: ATTENTION DEFICIT HYPERACTIVITY DISORDER
     Dosage: 100 MG TWICE A DAY

REACTIONS (2)
  - Product use in unapproved indication [Not Recovered/Not Resolved]
  - Neurotoxicity [Recovered/Resolved]
